FAERS Safety Report 7974564-5 (Version None)
Quarter: 2011Q4

REPORT INFORMATION
  Report Type: 
  Country: None (occurrence: None)
  Receive Date: 20111213
  Receipt Date: 20111203
  Transmission Date: 20120403
  Serious: Yes (Hospitalization)
  Sender: FDA-Public Use
  Company Number: JP-ELI_LILLY_AND_COMPANY-JP201106008711

PATIENT
  Age: 75 Year
  Sex: Female

DRUGS (3)
  1. FORTEO [Suspect]
     Dosage: UNK
     Route: 058
     Dates: start: 20110613
  2. CALCIUM [Concomitant]
     Route: 048
  3. FORTEO [Suspect]
     Dosage: UNK
     Route: 058

REACTIONS (7)
  - OSTEOPOROSIS [None]
  - ABDOMINAL DISCOMFORT [None]
  - HYPOAESTHESIA [None]
  - MALAISE [None]
  - PAIN IN EXTREMITY [None]
  - MYALGIA [None]
  - HEAT RASH [None]
